FAERS Safety Report 24765822 (Version 2)
Quarter: 2025Q3

REPORT INFORMATION
  Report Type: Spontaneous
  Country: US (occurrence: US)
  Receive Date: 20241223
  Receipt Date: 20250809
  Transmission Date: 20251021
  Serious: Yes (Other)
  Sender: ALEXION PHARMACEUTICALS
  Company Number: US-ASTRAZENECA-202412USA015059US

PATIENT
  Age: 75 Year
  Sex: Male

DRUGS (11)
  1. TEZSPIRE [Suspect]
     Active Substance: TEZEPELUMAB-EKKO
     Route: 065
  2. TEZSPIRE [Suspect]
     Active Substance: TEZEPELUMAB-EKKO
  3. RELUGOLIX [Suspect]
     Active Substance: RELUGOLIX
     Indication: Prostate cancer
  4. RELUGOLIX [Suspect]
     Active Substance: RELUGOLIX
     Dosage: 120 MILLIGRAM, QD
     Dates: start: 20211022
  5. RELUGOLIX [Suspect]
     Active Substance: RELUGOLIX
  6. RELUGOLIX [Suspect]
     Active Substance: RELUGOLIX
  7. RELUGOLIX [Suspect]
     Active Substance: RELUGOLIX
  8. ROPINIROLE HYDROCHLORIDE [Suspect]
     Active Substance: ROPINIROLE HYDROCHLORIDE
     Indication: Neoplasm malignant
     Route: 065
     Dates: start: 20211021, end: 20211021
  9. ROPINIROLE HYDROCHLORIDE [Suspect]
     Active Substance: ROPINIROLE HYDROCHLORIDE
     Indication: Parkinson^s disease
  10. BUMEX [Suspect]
     Active Substance: BUMETANIDE
     Route: 065
  11. OXYGEN [Concomitant]
     Active Substance: OXYGEN

REACTIONS (24)
  - Pericardial effusion [Unknown]
  - Renal failure [Unknown]
  - Cardiac failure congestive [Unknown]
  - Heart rate abnormal [Unknown]
  - Pulmonary pain [Unknown]
  - Dehydration [Unknown]
  - Pollakiuria [Unknown]
  - Illness [Unknown]
  - Joint injury [Unknown]
  - Skin laceration [Unknown]
  - Dyspnoea [Unknown]
  - Depressed mood [Unknown]
  - Myalgia [Recovered/Resolved]
  - Malaise [Unknown]
  - Asthenia [Unknown]
  - Arthralgia [Not Recovered/Not Resolved]
  - Gynaecomastia [Unknown]
  - Headache [Unknown]
  - Catheterisation cardiac [Unknown]
  - Myalgia [Recovered/Resolved]
  - Angular cheilitis [Recovered/Resolved]
  - Dehydration [Unknown]
  - Injury [Unknown]
  - Pulmonary pain [Unknown]

NARRATIVE: CASE EVENT DATE: 20211001
